FAERS Safety Report 6924110-X (Version None)
Quarter: 2010Q3

REPORT INFORMATION
  Report Type: 
  Country: None (occurrence: None)
  Receive Date: 20100813
  Receipt Date: 20100803
  Transmission Date: 20110219
  Serious: Yes (Other)
  Sender: FDA-Public Use
  Company Number: BR-ABBOTT-08P-020-0464813-00

PATIENT
  Sex: Female
  Weight: 64 kg

DRUGS (7)
  1. HUMIRA [Suspect]
     Indication: RHEUMATOID ARTHRITIS
     Route: 058
     Dates: start: 20060101, end: 20080101
  2. HUMIRA [Suspect]
     Dates: start: 20080101
  3. UNKNOWN MEDICATIONS [Concomitant]
     Indication: BLOOD PRESSURE ABNORMAL
  4. CLONIDINE [Concomitant]
     Indication: HYPERTENSION
     Route: 048
     Dates: start: 20100601
  5. ATENOLOL [Concomitant]
     Indication: HYPERTENSION
     Route: 048
  6. LOSARTAN POTASSIUM [Concomitant]
     Indication: HYPERTENSION
     Route: 048
     Dates: start: 20100701
  7. IRON POLYMALTOSE [Concomitant]
     Indication: ANAEMIA
     Dosage: 5 APPLICATIONS EVERY 2 DAYS
     Route: 042
     Dates: start: 20080101

REACTIONS (9)
  - BONE PAIN [None]
  - CARDIAC FAILURE [None]
  - CARDIOMEGALY [None]
  - EYE HAEMORRHAGE [None]
  - MOBILITY DECREASED [None]
  - MUSCLE ATROPHY [None]
  - MUSCULOSKELETAL PAIN [None]
  - RENAL FAILURE [None]
  - VISUAL ACUITY REDUCED [None]
